FAERS Safety Report 11766153 (Version 1)
Quarter: 2015Q4

REPORT INFORMATION
  Report Type: Other
  Country: IT (occurrence: IT)
  Receive Date: 20151122
  Receipt Date: 20151122
  Transmission Date: 20160304
  Serious: Yes (Other)
  Sender: FDA-Public Use
  Company Number: IT-LUPIN PHARMACEUTICALS INC.-2015-02790

PATIENT
  Sex: Male
  Weight: 2.38 kg

DRUGS (2)
  1. TELMISARTAN. [Suspect]
     Active Substance: TELMISARTAN
     Indication: HYPERTENSION
     Dosage: 40MG
     Route: 065
  2. TELMISARTAN AND HYDROCHLORTHIAZIDE [Suspect]
     Active Substance: HYDROCHLOROTHIAZIDE\TELMISARTAN
     Indication: HYPERTENSION
     Dosage: 80 MG
     Route: 065

REACTIONS (9)
  - Maternal drugs affecting foetus [None]
  - Acute kidney injury [Recovered/Resolved]
  - Oligohydramnios [Recovered/Resolved]
  - Foetal growth restriction [None]
  - Caesarean section [None]
  - Meconium stain [None]
  - Transient tachypnoea of the newborn [None]
  - Blood pressure decreased [None]
  - Foetal exposure during pregnancy [Unknown]
